FAERS Safety Report 25802711 (Version 1)
Quarter: 2025Q3

REPORT INFORMATION
  Report Type: Spontaneous
  Country: US (occurrence: US)
  Receive Date: 20250915
  Receipt Date: 20250915
  Transmission Date: 20251020
  Serious: No
  Sender: PFIZER
  Company Number: US-PFIZER INC-202500178988

PATIENT
  Age: 82 Year
  Sex: Male
  Weight: 102.06 kg

DRUGS (1)
  1. PAXLOVID [Suspect]
     Active Substance: NIRMATRELVIR\RITONAVIR
     Indication: COVID-19 treatment
     Dates: start: 202509, end: 20250908

REACTIONS (1)
  - Taste disorder [Recovered/Resolved]

NARRATIVE: CASE EVENT DATE: 20250901
